FAERS Safety Report 13324355 (Version 1)
Quarter: 2017Q1

REPORT INFORMATION
  Report Type: Report from Study
  Country: US (occurrence: US)
  Receive Date: 20170310
  Receipt Date: 20170310
  Transmission Date: 20170428
  Serious: Yes (Other)
  Sender: FDA-Public Use
  Company Number: US-AMGEN-USASL2017035636

PATIENT
  Age: 65 Year
  Sex: Male

DRUGS (8)
  1. ENBREL [Suspect]
     Active Substance: ETANERCEPT
     Indication: PSORIATIC ARTHROPATHY
  2. PHENOBARBITAL. [Concomitant]
     Active Substance: PHENOBARBITAL
     Indication: EPILEPSY
     Dosage: 30 MG, 4 TIMES A DAY
     Route: 065
  3. SYNTHROID [Concomitant]
     Active Substance: LEVOTHYROXINE SODIUM
     Indication: EPILEPSY
     Dosage: 0.1 MUG, QD
     Route: 065
  4. ENBREL [Suspect]
     Active Substance: ETANERCEPT
     Indication: SCOLIOSIS
  5. GABAPENTIN. [Concomitant]
     Active Substance: GABAPENTIN
     Indication: EPILEPSY
     Dosage: UNK UNK, BID
     Route: 065
  6. ENBREL [Suspect]
     Active Substance: ETANERCEPT
     Indication: ANKYLOSING SPONDYLITIS
     Dosage: 50 MG, QWK
     Route: 065
     Dates: start: 2005
  7. ENBREL [Suspect]
     Active Substance: ETANERCEPT
     Indication: KYPHOSIS
  8. METOPROLOL. [Concomitant]
     Active Substance: METOPROLOL
     Indication: EPILEPSY
     Dosage: 50 MG, BID
     Route: 065

REACTIONS (5)
  - Gait disturbance [Unknown]
  - Off label use [Unknown]
  - Epilepsy [Unknown]
  - Sinusitis [Unknown]
  - Pyrexia [Unknown]
